FAERS Safety Report 4404169-4 (Version None)
Quarter: 2004Q3

REPORT INFORMATION
  Report Type: 
  Country: None (occurrence: None)
  Receive Date: 20040721
  Receipt Date: 20040721
  Transmission Date: 20050211
  Serious: No
  Sender: FDA-Public Use
  Company Number: None

PATIENT
  Age: 86 Year
  Sex: Male
  Weight: 62.5 kg

DRUGS (14)
  1. GATIFLOXACIN  TAB [Suspect]
     Indication: LEUKOCYTOSIS
     Dosage: 200 MG PO
     Route: 048
     Dates: start: 20040209, end: 20040220
  2. IPATROPIUM BROMIDE [Concomitant]
  3. DORZOLAMIDE HCL 2% [Concomitant]
  4. RABEPRAZOLE SODIUM [Concomitant]
  5. ASPIRIN [Concomitant]
  6. ACETAMINOPHEN [Concomitant]
  7. ALBUTEROL [Concomitant]
  8. ARTIFICIAL TEARS [Concomitant]
  9. BRIMONIDINE TARTRATE 0.15% [Concomitant]
  10. FELODIPINE [Concomitant]
  11. SODIUM CHLORIDE INJ [Concomitant]
  12. LISINOPRIL [Concomitant]
  13. SALMETEROL [Concomitant]
  14. FLUOROURACIL 5% [Concomitant]

REACTIONS (1)
  - CLOSTRIDIAL INFECTION [None]
